FAERS Safety Report 6828291-8 (Version None)
Quarter: 2010Q3

REPORT INFORMATION
  Report Type: 
  Country: None (occurrence: None)
  Receive Date: 20100709
  Receipt Date: 20070202
  Transmission Date: 20110219
  Serious: No
  Sender: FDA-Public Use
  Company Number: US-PFIZER INC-2007009924

PATIENT
  Sex: Female
  Weight: 72.57 kg

DRUGS (3)
  1. CHANTIX [Suspect]
     Indication: SMOKING CESSATION THERAPY
     Dates: start: 20070129
  2. TOPAMAX [Concomitant]
     Indication: CONVULSION
  3. DEPAKOTE [Concomitant]
     Indication: CONVULSION

REACTIONS (1)
  - NAUSEA [None]
